FAERS Safety Report 6028549-9 (Version None)
Quarter: 2009Q1

REPORT INFORMATION
  Report Type: 
  Country: None (occurrence: None)
  Receive Date: 20090106
  Receipt Date: 20081222
  Transmission Date: 20090719
  Serious: Yes (Other)
  Sender: FDA-Public Use
  Company Number: BR-PFIZER INC-2008049661

PATIENT

DRUGS (1)
  1. LIPITOR [Suspect]
     Route: 048

REACTIONS (5)
  - BLOOD CHOLESTEROL INCREASED [None]
  - BLOOD TRIGLYCERIDES INCREASED [None]
  - EMPHYSEMA [None]
  - EROSIVE OESOPHAGITIS [None]
  - PERIPHERAL VASCULAR DISORDER [None]
